FAERS Safety Report 7617806-8 (Version None)
Quarter: 2011Q3

REPORT INFORMATION
  Report Type: 
  Country: None (occurrence: None)
  Receive Date: 20110718
  Receipt Date: 20110708
  Transmission Date: 20111222
  Serious: Yes (Other)
  Sender: FDA-Public Use
  Company Number: US-ENDO PHARMACEUTICALS INC.-ENDC20110075

PATIENT
  Sex: Male

DRUGS (1)
  1. OXYCODONE AND ACETAMINOPHEN [Suspect]
     Dosage: 50/1625 MG
     Route: 048
     Dates: end: 20110101

REACTIONS (4)
  - GROIN PAIN [None]
  - TREMOR [None]
  - CEREBROVASCULAR ACCIDENT [None]
  - SPEECH DISORDER [None]
